FAERS Safety Report 8471806-7 (Version None)
Quarter: 2012Q2

REPORT INFORMATION
  Report Type: 
  Country: None (occurrence: None)
  Receive Date: 20120627
  Receipt Date: 20120618
  Transmission Date: 20120825
  Serious: Yes (Other)
  Sender: FDA-Public Use
  Company Number: CA-JNJFOC-20120608734

PATIENT
  Sex: Male
  Weight: 68 kg

DRUGS (6)
  1. BENADRYL [Concomitant]
     Indication: PREMEDICATION
     Route: 048
  2. REMICADE [Suspect]
     Route: 042
     Dates: start: 20120618
  3. REMICADE [Suspect]
     Route: 042
     Dates: start: 20120611
  4. ACETAMINOPHEN [Concomitant]
     Indication: PREMEDICATION
     Route: 048
  5. SOLU-CORTEF [Concomitant]
     Indication: PREMEDICATION
     Route: 042
  6. REMICADE [Suspect]
     Indication: CROHN'S DISEASE
     Dosage: ^2^
     Route: 042
     Dates: start: 20120531

REACTIONS (6)
  - HYPERHIDROSIS [None]
  - CHEST DISCOMFORT [None]
  - INFUSION RELATED REACTION [None]
  - ERYTHEMA [None]
  - DYSPNOEA [None]
  - TACHYCARDIA [None]
